FAERS Safety Report 4637604-7 (Version None)
Quarter: 2005Q2

REPORT INFORMATION
  Report Type: 
  Country: None (occurrence: None)
  Receive Date: 20050325
  Receipt Date: 20050117
  Transmission Date: 20051028
  Serious: No
  Sender: FDA-Public Use
  Company Number: USA041184429

PATIENT
  Age: 74 Year
  Sex: Female
  Weight: 56 kg

DRUGS (5)
  1. FORTEO [Suspect]
     Indication: OSTEOPOROSIS
     Dosage: 20 UG/1 DAY
     Dates: start: 20040311
  2. METHOTREXATE [Concomitant]
  3. FOLIC ACID [Concomitant]
  4. CALCIUM WITH VITAMIN D [Concomitant]
  5. REMICADE [Concomitant]

REACTIONS (1)
  - OVARIAN CYST [None]
